FAERS Safety Report 6524042-5 (Version None)
Quarter: 2009Q4

REPORT INFORMATION
  Report Type: 
  Country: None (occurrence: None)
  Receive Date: 20091231
  Receipt Date: 20091228
  Transmission Date: 20100525
  Serious: Yes (Life-Threatening, Hospitalization)
  Sender: FDA-Public Use
  Company Number: PHHY2009CH58692

PATIENT
  Age: 46 Year
  Sex: Female

DRUGS (1)
  1. MYFORTIC [Suspect]
     Indication: SYSTEMIC LUPUS ERYTHEMATOSUS
     Dosage: 720 MG/DAY
     Dates: start: 20071101, end: 20090527

REACTIONS (4)
  - DYSPHAGIA [None]
  - HAEMATEMESIS [None]
  - OESOPHAGEAL STENOSIS [None]
  - OESOPHAGITIS [None]
